FAERS Safety Report 8697112 (Version 2)
Quarter: 2015Q3

REPORT INFORMATION
  Report Type: Spontaneous
  Country: JP (occurrence: None)
  Receive Date: 20120717
  Receipt Date: 20150831
  Transmission Date: 20151125
  Serious: Yes (Other)
  Sender: FDA-Public Use
  Company Number: 2010JP005012

PATIENT
  Age: 32 Year
  Sex: Female
  Weight: 43 kg

DRUGS (12)
  1. SELBEX (TEPRENONE) [Concomitant]
     Active Substance: TEPRENONE
  2. CALCIUM LACTATE (CALCIUM LACTATE) [Concomitant]
     Active Substance: CALCIUM LACTATE
  3. KLARICID/00984501/ (CLARITHROMYCIN) [Concomitant]
  4. WARFARIN POTASSIUM (WARFARIN POTASSIUM) [Concomitant]
  5. TACROLIMUS CAPSULES (TACROLIMUS) CAPSULE [Suspect]
     Active Substance: TACROLIMUS
     Indication: LUPUS NEPHRITIS
     Dosage: 3 MG, UNKNOWN/D, ORAL
     Route: 048
     Dates: start: 20090702, end: 201106
  6. GASTER [Concomitant]
     Active Substance: FAMOTIDINE
  7. ALFAROL [Concomitant]
     Active Substance: ALFACALCIDOL
  8. LIPITOR [Concomitant]
     Active Substance: ATORVASTATIN CALCIUM
  9. VALTREX [Concomitant]
     Active Substance: VALACYCLOVIR HYDROCHLORIDE
  10. PREDNISOLONE (REDNISOLONE) [Concomitant]
  11. SULFAMETHOXAZOLE AND TRIMETHOPRIM [Concomitant]
     Active Substance: SULFAMETHOXAZOLE\TRIMETHOPRIM
  12. ACTONEL [Concomitant]
     Active Substance: RISEDRONATE SODIUM

REACTIONS (11)
  - Aspartate aminotransferase increased [None]
  - Alanine aminotransferase increased [None]
  - Liver disorder [None]
  - Sinusitis [None]
  - Blood alkaline phosphatase increased [None]
  - Gamma-glutamyltransferase increased [None]
  - Bronchitis [None]
  - Upper respiratory tract inflammation [None]
  - Enterocolitis [None]
  - Maternal exposure during pregnancy [None]
  - Herpes zoster [None]

NARRATIVE: CASE EVENT DATE: 20100219
